FAERS Safety Report 13415761 (Version 1)
Quarter: 2017Q2

REPORT INFORMATION
  Report Type: Spontaneous
  Country: SA (occurrence: SA)
  Receive Date: 20170407
  Receipt Date: 20170407
  Transmission Date: 20170830
  Serious: Yes (Other)
  Sender: FDA-Public Use
  Company Number: SA-TEVA-758028ROM

PATIENT
  Age: 21 Year
  Sex: Male

DRUGS (26)
  1. PREDNISONE. [Suspect]
     Active Substance: PREDNISONE
     Indication: B-CELL TYPE ACUTE LEUKAEMIA
     Dosage: INDUCTION CHEMOTHERAPY
  2. ETOPOSIDE. [Suspect]
     Active Substance: ETOPOSIDE
     Indication: B-CELL TYPE ACUTE LEUKAEMIA
  3. BORTEZOMIB [Suspect]
     Active Substance: BORTEZOMIB
  4. RITUXIMAB [Suspect]
     Active Substance: RITUXIMAB
  5. CYTARABINE. [Suspect]
     Active Substance: CYTARABINE
     Indication: B-CELL TYPE ACUTE LEUKAEMIA
     Dosage: INDUCTION CHEMOTHERAPY
  6. VINCRISTINE [Suspect]
     Active Substance: VINCRISTINE
     Indication: B-CELL TYPE ACUTE LEUKAEMIA
     Dosage: INDUCTION CHEMOTHERAPY
  7. MELPHALAN. [Suspect]
     Active Substance: MELPHALAN
  8. BLINATUMOMAB [Suspect]
     Active Substance: BLINATUMOMAB
  9. NEUPOGEN [Suspect]
     Active Substance: FILGRASTIM
  10. ADRIAMYCIN [Suspect]
     Active Substance: DOXORUBICIN HYDROCHLORIDE
     Indication: B-CELL TYPE ACUTE LEUKAEMIA
     Dosage: 2 CYCLES, PART OF CHOO TREATMENT
  11. HYDROCORTISONE ACETATE. [Suspect]
     Active Substance: HYDROCORTISONE ACETATE
     Indication: B-CELL TYPE ACUTE LEUKAEMIA
     Dosage: INDUCTION CHEMOTHERAPY
  12. DEXAMETHASONE. [Suspect]
     Active Substance: DEXAMETHASONE
     Indication: B-CELL TYPE ACUTE LEUKAEMIA
  13. DECADRON [Suspect]
     Active Substance: DEXAMETHASONE
  14. MITOXANTRONE [Suspect]
     Active Substance: MITOXANTRONE HYDROCHLORIDE
     Indication: B-CELL TYPE ACUTE LEUKAEMIA
  15. FLUDARABINE [Suspect]
     Active Substance: FLUDARABINE PHOSPHATE
     Indication: B-CELL TYPE ACUTE LEUKAEMIA
  16. DEXAMETHASONE. [Suspect]
     Active Substance: DEXAMETHASONE
     Dosage: 2 CYCLES, PART OF CHOO INTENSIFICATION
  17. CYCLOPHOSPHAMIDE. [Suspect]
     Active Substance: CYCLOPHOSPHAMIDE
     Indication: PROPHYLAXIS AGAINST TRANSPLANT REJECTION
  18. CYTARABINE. [Suspect]
     Active Substance: CYTARABINE
     Dosage: 2 CYCLES OF HIGH-DOSE FOR CONSOLIDATION
  19. CYTARABINE. [Suspect]
     Active Substance: CYTARABINE
     Dosage: RE-INDUCTION CHEMOTHERAPY
  20. GANCICLOVIR. [Suspect]
     Active Substance: GANCICLOVIR
     Indication: B-CELL TYPE ACUTE LEUKAEMIA
  21. DAUNORUBICIN [Suspect]
     Active Substance: DAUNORUBICIN
     Indication: B-CELL TYPE ACUTE LEUKAEMIA
     Dosage: INDUCTION CHEMOTHERAPY
  22. CYCLOPHOSPHAMIDE. [Suspect]
     Active Substance: CYCLOPHOSPHAMIDE
     Indication: B-CELL TYPE ACUTE LEUKAEMIA
     Dosage: 2 CYCLES, PART OF CHOO INTENSIFICATION
  23. CAMPATH [Suspect]
     Active Substance: ALEMTUZUMAB
  24. VINCRISTINE [Suspect]
     Active Substance: VINCRISTINE
     Dosage: 2 CYCLES OF CHOO INTENSIFICATION
  25. LEUNASE INJECTION [Suspect]
     Active Substance: ASPARAGINASE
     Indication: B-CELL TYPE ACUTE LEUKAEMIA
     Dosage: INDUCTION CHEMOTHERAPY
  26. MERCAPTOPURINE. [Suspect]
     Active Substance: MERCAPTOPURINE

REACTIONS (6)
  - Leukaemia recurrent [Recovered/Resolved]
  - Cytomegalovirus infection [Unknown]
  - Cytopenia [Unknown]
  - Clostridium difficile infection [Unknown]
  - Renal mass [Unknown]
  - Pleuritic pain [Unknown]
